FAERS Safety Report 25572593 (Version 1)
Quarter: 2025Q3

REPORT INFORMATION
  Report Type: Report from Study
  Country: US (occurrence: US)
  Receive Date: 20250717
  Receipt Date: 20250717
  Transmission Date: 20251021
  Serious: Yes (Hospitalization)
  Sender: STEMLINE THERAPEUTICS
  Company Number: US-STEMLINE THERAPEUTICS B.V.-2025-STML-US001654

PATIENT

DRUGS (2)
  1. ORSERDU [Suspect]
     Active Substance: ELACESTRANT
     Indication: Breast cancer female
     Dosage: 345 MG, DAILY
     Route: 048
     Dates: start: 20250508
  2. ORSERDU [Suspect]
     Active Substance: ELACESTRANT
     Dosage: 345 MG, DAILY
     Route: 048
     Dates: start: 20250508

REACTIONS (6)
  - Peripheral swelling [Unknown]
  - Fall [Unknown]
  - Cellulitis [Not Recovered/Not Resolved]
  - Urine output decreased [Unknown]
  - Irritability [Unknown]
  - Injury [Unknown]

NARRATIVE: CASE EVENT DATE: 20250101
